FAERS Safety Report 21711266 (Version 2)
Quarter: 2022Q4

REPORT INFORMATION
  Report Type: Report from Study
  Country: US (occurrence: US)
  Receive Date: 20221212
  Receipt Date: 20221213
  Transmission Date: 20230112
  Serious: No
  Sender: FDA-Public Use
  Company Number: US-ABBVIE-4211770

PATIENT
  Age: 65 Year
  Sex: Female

DRUGS (3)
  1. RINVOQ [Suspect]
     Active Substance: UPADACITINIB
     Indication: Product used for unknown indication
     Route: 048
  2. RINVOQ [Suspect]
     Active Substance: UPADACITINIB
     Indication: Product used for unknown indication
     Route: 048
  3. RINVOQ [Suspect]
     Active Substance: UPADACITINIB
     Indication: Product used for unknown indication
     Dosage: DOSE DECREASED.
     Route: 048

REACTIONS (4)
  - Diarrhoea [Recovered/Resolved]
  - Upper respiratory tract infection [Unknown]
  - Hypersensitivity [Unknown]
  - Sinus headache [Unknown]

NARRATIVE: CASE EVENT DATE: 20221101
